FAERS Safety Report 11701269 (Version 1)
Quarter: 2015Q4

REPORT INFORMATION
  Report Type: Spontaneous
  Country: US (occurrence: US)
  Receive Date: 20151105
  Receipt Date: 20151105
  Transmission Date: 20160304
  Serious: Yes (Hospitalization, Other)
  Sender: FDA-Public Use
  Company Number: US-ASTRAZENECA-2011SE20156

PATIENT
  Age: 666 Month
  Sex: Female
  Weight: 61 kg

DRUGS (17)
  1. SEROQUEL XR [Suspect]
     Active Substance: QUETIAPINE FUMARATE
     Indication: BIPOLAR DISORDER
     Route: 048
  2. TYLENOL WITH CODEINE [Suspect]
     Active Substance: ACETAMINOPHEN\CODEINE PHOSPHATE
     Indication: PAIN
     Route: 065
  3. GABAPENTIN. [Suspect]
     Active Substance: GABAPENTIN
     Route: 048
     Dates: start: 20120118
  4. ATORVASTATIN [Concomitant]
     Active Substance: ATORVASTATIN
     Indication: BLOOD CHOLESTEROL ABNORMAL
  5. SEROQUEL XR [Suspect]
     Active Substance: QUETIAPINE FUMARATE
     Indication: BIPOLAR DISORDER
     Route: 048
     Dates: start: 201005
  6. SEROQUEL XR [Suspect]
     Active Substance: QUETIAPINE FUMARATE
     Indication: BIPOLAR DISORDER
     Route: 048
     Dates: start: 20100112
  7. GABAPENTIN. [Suspect]
     Active Substance: GABAPENTIN
     Dosage: 200MG BY MOUTH ONCE OR TWICE A DAY
     Route: 048
     Dates: start: 2006
  8. GABAPENTIN. [Suspect]
     Active Substance: GABAPENTIN
     Dosage: 200-400 PER DAY
     Route: 048
     Dates: start: 20120613
  9. AMBIEN [Concomitant]
     Active Substance: ZOLPIDEM TARTRATE
     Indication: SLEEP DISORDER
     Route: 048
  10. SEROQUEL XR [Suspect]
     Active Substance: QUETIAPINE FUMARATE
     Indication: BIPOLAR DISORDER
     Route: 048
     Dates: start: 201012
  11. LYRICA [Suspect]
     Active Substance: PREGABALIN
     Dosage: 25MG-75MG CAPSULE BY MOUTH ONCE OR TWICE A DAY
     Route: 048
     Dates: start: 2006
  12. GABAPENTIN. [Suspect]
     Active Substance: GABAPENTIN
     Dosage: 200-400 MG AT NIGHT
     Route: 048
     Dates: start: 20120224
  13. SEROQUEL XR [Suspect]
     Active Substance: QUETIAPINE FUMARATE
     Indication: BIPOLAR DISORDER
     Route: 048
     Dates: start: 201011
  14. SEROQUEL XR [Suspect]
     Active Substance: QUETIAPINE FUMARATE
     Indication: BIPOLAR DISORDER
     Route: 048
  15. VICODIN [Suspect]
     Active Substance: ACETAMINOPHEN\HYDROCODONE BITARTRATE
     Indication: PAIN
     Dosage: 1-2 HALVES ONCE OR TWICE A DAY
     Route: 065
     Dates: start: 2006
  16. LITHIUM. [Concomitant]
     Active Substance: LITHIUM
  17. SEROQUEL XR [Suspect]
     Active Substance: QUETIAPINE FUMARATE
     Indication: BIPOLAR DISORDER
     Route: 048
     Dates: start: 201001

REACTIONS (17)
  - Blood pressure increased [Unknown]
  - Hypothyroidism [Unknown]
  - Agitation [Unknown]
  - Hypoaesthesia [Not Recovered/Not Resolved]
  - Paranoia [Unknown]
  - Blood cholesterol increased [Recovering/Resolving]
  - Mania [Recovered/Resolved]
  - Speech disorder [Unknown]
  - Blood thyroid stimulating hormone increased [Recovered/Resolved]
  - Dry eye [Unknown]
  - Abnormal behaviour [Unknown]
  - Intentional product misuse [Unknown]
  - Corneal abrasion [Unknown]
  - Cerebrovascular accident [Unknown]
  - Arthralgia [Unknown]
  - Weight increased [Unknown]
  - Musculoskeletal stiffness [Unknown]

NARRATIVE: CASE EVENT DATE: 200901
